FAERS Safety Report 5125904-6 (Version None)
Quarter: 2006Q4

REPORT INFORMATION
  Report Type: 
  Country: None (occurrence: None)
  Receive Date: 20061012
  Receipt Date: 20061010
  Transmission Date: 20070319
  Serious: Yes (Hospitalization)
  Sender: FDA-Public Use
  Company Number: FR-GLAXOSMITHKLINE-B0441512A

PATIENT
  Age: 75 Year
  Sex: Female

DRUGS (7)
  1. CLAMOXYL [Suspect]
     Dosage: 3G THREE TIMES PER DAY
     Route: 048
     Dates: start: 20060801, end: 20060818
  2. GENTAMICIN [Suspect]
     Route: 048
     Dates: start: 20060801, end: 20060818
  3. PERINDOPRIL ERBUMINE [Concomitant]
     Route: 065
  4. INSULATARD NPH HUMAN [Concomitant]
     Route: 065
  5. AERIUS [Concomitant]
     Route: 065
  6. PLAVIX [Concomitant]
     Route: 065
  7. NOVORAPID [Concomitant]
     Route: 065

REACTIONS (4)
  - ACUTE GENERALISED EXANTHEMATOUS PUSTULOSIS [None]
  - C-REACTIVE PROTEIN INCREASED [None]
  - PYREXIA [None]
  - RASH PUSTULAR [None]
